FAERS Safety Report 7895182-3 (Version None)
Quarter: 2011Q4

REPORT INFORMATION
  Report Type: 
  Country: None (occurrence: None)
  Receive Date: 20111106
  Receipt Date: 20110823
  Transmission Date: 20120403
  Serious: No
  Sender: FDA-Public Use
  Company Number: US-AMGEN-USASP2011043179

PATIENT
  Age: 51 Year
  Sex: Female

DRUGS (1)
  1. ENBREL [Suspect]
     Indication: ANKYLOSING SPONDYLITIS
     Dosage: 25 MG, QWK
     Dates: start: 20030901

REACTIONS (5)
  - HEADACHE [None]
  - GENERALISED ERYTHEMA [None]
  - PRURITUS [None]
  - PRURITUS GENERALISED [None]
  - SLEEP DISORDER [None]
